FAERS Safety Report 6211221-X (Version None)
Quarter: 2009Q2

REPORT INFORMATION
  Report Type: 
  Country: None (occurrence: None)
  Receive Date: 20090602
  Receipt Date: 20090522
  Transmission Date: 20091009
  Serious: Yes (Other)
  Sender: FDA-Public Use
  Company Number: US-JNJCH-2008054948

PATIENT
  Sex: Female
  Weight: 22.7 kg

DRUGS (5)
  1. ZYRTEC HIVES RELIEF [Suspect]
     Indication: URTICARIA
     Dosage: TEXT:1 TEASPOON ONCE
     Route: 048
     Dates: start: 20081108, end: 20081108
  2. DECADRON [Suspect]
     Indication: URTICARIA
     Dosage: TEXT:UNSPECIFIED INJECTION
     Route: 050
  3. SINGULAIR [Suspect]
     Indication: RESPIRATORY TRACT INFECTION
     Dosage: TEXT:UNSPECIFIED
     Route: 065
  4. ZITHROMAX [Suspect]
     Indication: RESPIRATORY TRACT INFECTION
     Dosage: TEXT:UNSPECIFIED
     Route: 065
  5. XYZAL [Suspect]
     Indication: DRUG USE FOR UNKNOWN INDICATION
     Dosage: TEXT:UNSPECIFIED
     Route: 065

REACTIONS (5)
  - ANAPHYLACTIC SHOCK [None]
  - EYE SWELLING [None]
  - RASH [None]
  - URTICARIA [None]
  - WRONG DRUG ADMINISTERED [None]
